FAERS Safety Report 5197134-3 (Version None)
Quarter: 2007Q1

REPORT INFORMATION
  Report Type: 
  Country: None (occurrence: None)
  Receive Date: 20070103
  Receipt Date: 20070102
  Transmission Date: 20070707
  Serious: Yes (Hospitalization)
  Sender: FDA-Public Use
  Company Number: S06-USA-04715-01

PATIENT
  Age: 51 Year
  Sex: Male

DRUGS (7)
  1. LITHIUM CARBONATE [Suspect]
     Indication: BIPOLAR II DISORDER
     Dosage: 300MG PER DAY
     Route: 048
     Dates: end: 20061108
  2. LEXAPRO [Suspect]
     Indication: BIPOLAR II DISORDER
     Dosage: 40MG PER DAY
     Route: 048
     Dates: start: 20040101, end: 20061108
  3. WELLBUTRIN XL [Concomitant]
     Route: 048
  4. GEODON [Concomitant]
  5. ATENOLOL [Concomitant]
  6. LIPITOR [Concomitant]
  7. MAXALT [Concomitant]

REACTIONS (11)
  - AGITATION [None]
  - AKATHISIA [None]
  - AMNESIA [None]
  - ANXIETY [None]
  - CHILLS [None]
  - HYPERHIDROSIS [None]
  - HYPERREFLEXIA [None]
  - MYOCLONUS [None]
  - RESTLESSNESS [None]
  - SEROTONIN SYNDROME [None]
  - TREMOR [None]
